FAERS Safety Report 9036168 (Version 1)
Quarter: 2013Q1

REPORT INFORMATION
  Report Type: Report from Study
  Country: US (occurrence: US)
  Receive Date: 20130129
  Receipt Date: 20130129
  Transmission Date: 20140127
  Serious: No
  Sender: FDA-Public Use
  Company Number: US-ABBOTT-12P-163-0924032-00

PATIENT
  Age: 28 Year
  Sex: Female

DRUGS (8)
  1. HUMIRA 40 MG/0.8 ML PEN [Suspect]
     Indication: PSORIATIC ARTHROPATHY
     Dates: start: 201201
  2. HUMIRA 40 MG/0.8 ML PEN [Suspect]
  3. DIAZEPAM [Concomitant]
     Indication: ANXIETY
  4. DIAZEPAM [Concomitant]
     Indication: NAUSEA
  5. OXYCODONE [Concomitant]
     Indication: PAIN
     Dosage: EVERY 4 HOURS
  6. OXYCODONE [Concomitant]
     Indication: PSORIATIC ARTHROPATHY
  7. AMITRIPTYLINE [Concomitant]
     Indication: INSOMNIA
     Dosage: AT BEDTIME
  8. GABAPENTIN [Concomitant]
     Indication: NEUROPATHY PERIPHERAL

REACTIONS (3)
  - Gastritis erosive [Recovered/Resolved]
  - Haematemesis [Recovered/Resolved]
  - Weight decreased [Recovered/Resolved]
